FAERS Safety Report 4941908-8 (Version None)
Quarter: 2006Q1

REPORT INFORMATION
  Report Type: 
  Country: None (occurrence: None)
  Receive Date: 20060313
  Receipt Date: 20060310
  Transmission Date: 20060701
  Serious: Yes (Hospitalization)
  Sender: FDA-Public Use
  Company Number: CH-MERCK-0603CHE00300

PATIENT
  Age: 92 Year
  Sex: Male
  Weight: 70 kg

DRUGS (10)
  1. MODURETIC 5-50 [Suspect]
     Indication: HYPERTENSIVE HEART DISEASE
     Route: 048
     Dates: end: 20060123
  2. MODURETIC 5-50 [Suspect]
     Indication: CARDIAC FAILURE CONGESTIVE
     Route: 048
     Dates: end: 20060123
  3. GABAPENTIN [Suspect]
     Indication: POLYNEUROPATHY
     Route: 048
  4. TORSEMIDE [Suspect]
     Indication: HYPERTENSIVE HEART DISEASE
     Route: 048
     Dates: end: 20060123
  5. TORSEMIDE [Suspect]
     Indication: CARDIAC FAILURE CONGESTIVE
     Route: 048
     Dates: end: 20060123
  6. ALFUZOSIN HYDROCHLORIDE [Suspect]
     Indication: BENIGN PROSTATIC HYPERPLASIA
     Route: 048
  7. ASPIRIN [Concomitant]
     Route: 048
  8. NITROGLYCERIN [Concomitant]
     Route: 061
  9. ATORVASTATIN CALCIUM [Concomitant]
     Route: 048
     Dates: end: 20060202
  10. ANTIMICROBIAL (UNSPECIFIED) [Concomitant]
     Indication: COUGH
     Route: 048

REACTIONS (6)
  - CONFUSIONAL STATE [None]
  - COORDINATION ABNORMAL [None]
  - DYSARTHRIA [None]
  - MEDICATION ERROR [None]
  - ORTHOSTATIC HYPOTENSION [None]
  - RENAL FAILURE CHRONIC [None]
